FAERS Safety Report 5066067-5 (Version None)
Quarter: 2006Q3

REPORT INFORMATION
  Report Type: 
  Country: None (occurrence: None)
  Receive Date: 20060731
  Receipt Date: 20060609
  Transmission Date: 20061208
  Serious: Yes (Hospitalization, Other)
  Sender: FDA-Public Use
  Company Number: FR-MERCK-0606FRA00020

PATIENT
  Age: 53 Year
  Sex: Male

DRUGS (7)
  1. CANCIDAS [Suspect]
     Indication: SYSTEMIC CANDIDA
     Route: 042
     Dates: start: 20060601, end: 20060601
  2. CANCIDAS [Suspect]
     Route: 042
     Dates: start: 20060602, end: 20060601
  3. TACROLIMUS [Concomitant]
     Indication: LIVER TRANSPLANT
     Route: 065
  4. INSULIN [Concomitant]
     Indication: DIABETES MELLITUS
     Route: 058
  5. MORPHINE [Concomitant]
     Indication: PAIN
     Route: 065
  6. NICARDIPINE HYDROCHLORIDE [Concomitant]
     Indication: HYPERTENSION
     Route: 048
  7. CIPROFLOXACIN HYDROCHLORIDE [Concomitant]
     Indication: INFECTION
     Route: 042
     Dates: start: 20050530

REACTIONS (2)
  - PANCYTOPENIA [None]
  - PNEUMOCYSTIS JIROVECI PNEUMONIA [None]
